FAERS Safety Report 8376582-4 (Version None)
Quarter: 2012Q2

REPORT INFORMATION
  Report Type: 
  Country: None (occurrence: None)
  Receive Date: 20120522
  Receipt Date: 20120514
  Transmission Date: 20120825
  Serious: Yes (Other)
  Sender: FDA-Public Use
  Company Number: JP-PFIZER INC-2012116227

PATIENT
  Age: 47 Year
  Sex: Female

DRUGS (2)
  1. AZULFIDINE [Suspect]
     Dosage: 1000 MG/DAY
  2. RHEUMATREX [Suspect]
     Dosage: 10 MG, WEEKLY

REACTIONS (1)
  - ANALGESIC ASTHMA SYNDROME [None]
